FAERS Safety Report 21516987 (Version 2)
Quarter: 2022Q4

REPORT INFORMATION
  Report Type: Spontaneous
  Country: US (occurrence: US)
  Receive Date: 20221028
  Receipt Date: 20221124
  Transmission Date: 20230113
  Serious: Yes (Hospitalization)
  Sender: FDA-Public Use
  Company Number: US-LUPIN PHARMACEUTICALS INC.-2022-12323

PATIENT

DRUGS (7)
  1. BOSENTAN [Suspect]
     Active Substance: BOSENTAN
     Indication: Hypoplastic left heart syndrome
     Dosage: UNK
     Route: 048
  2. MYCOPHENOLIC ACID [Concomitant]
     Active Substance: MYCOPHENOLIC ACID
     Indication: Immunosuppressant drug therapy
     Dosage: 2 MILLILITER, BID (2ML TWICE DAILY) (200MG/ML ORAL SUSPENSION)
     Route: 048
  3. EPANED [Concomitant]
     Active Substance: ENALAPRIL MALEATE
     Indication: Cardiac failure
     Dosage: 2.4 MILLILITER, BID (1MG/ML SOLUTION 2.4 ML TWICE DAILY)
     Route: 065
  4. MAGNESIUM SULFATE [Concomitant]
     Active Substance: MAGNESIUM SULFATE
     Indication: Blood magnesium decreased
     Dosage: 1.6 MILLILITER, QID (50 % 10ML INJECTION 1.6ML 4 TIMES DAILY)
     Route: 065
  5. OMEPRAZOLE [Concomitant]
     Active Substance: OMEPRAZOLE
     Indication: Prophylaxis
     Dosage: 5 MILLILITER, QD (2MG ORAL SUSPENSION 5ML ONCE DAILY)
     Route: 048
  6. TACROLIMUS [Concomitant]
     Active Substance: TACROLIMUS
     Indication: Immunosuppressant drug therapy
     Dosage: 1.8 MILLILITER, BID (0.5MG/ML ORAL SUSPENSION 1.8ML TWICE DAILY)
     Route: 048
  7. PREDNISOLONE [Concomitant]
     Active Substance: PREDNISOLONE
     Indication: Immunosuppressant drug therapy
     Dosage: 0.6 MILLILITER, BID (0.6ML TWICE DAILY)
     Route: 065

REACTIONS (4)
  - Cardiac disorder [Recovered/Resolved]
  - Product dose omission issue [Unknown]
  - Product use in unapproved indication [Unknown]
  - Product use issue [Unknown]

NARRATIVE: CASE EVENT DATE: 20221011
